FAERS Safety Report 6866142-6 (Version None)
Quarter: 2010Q3

REPORT INFORMATION
  Report Type: 
  Country: None (occurrence: None)
  Receive Date: 20100722
  Receipt Date: 20100709
  Transmission Date: 20110219
  Serious: Yes (Hospitalization, Other)
  Sender: FDA-Public Use
  Company Number: ES-ELI_LILLY_AND_COMPANY-ES201007004312

PATIENT
  Sex: Female

DRUGS (4)
  1. FORTEO [Suspect]
     Indication: OSTEOPOROSIS
     Dosage: 20 UG, DAILY (1/D)
     Route: 058
     Dates: end: 20100625
  2. NOLOTIL [Concomitant]
     Indication: BACK PAIN
     Dosage: UNK, 2/D
     Route: 048
  3. TRANKIMAZIN [Concomitant]
     Route: 048
  4. TEPAZEPAN [Concomitant]
     Indication: DEPRESSION
     Dosage: UNK, 2/D
     Route: 048

REACTIONS (2)
  - FALL [None]
  - HIP FRACTURE [None]
